FAERS Safety Report 5668614-9 (Version None)
Quarter: 2008Q1

REPORT INFORMATION
  Report Type: 
  Country: None (occurrence: None)
  Receive Date: 20080315
  Receipt Date: 20080229
  Transmission Date: 20080703
  Serious: No
  Sender: FDA-Public Use
  Company Number: US-ABBOTT-08P-163-0440634-00

PATIENT
  Sex: Female
  Weight: 43.584 kg

DRUGS (4)
  1. HUMIRA [Suspect]
     Indication: CROHN'S DISEASE
     Route: 058
     Dates: start: 20050101
  2. HUMIRA [Suspect]
  3. OXYCODONE HCL [Concomitant]
     Indication: CROHN'S DISEASE
  4. OXYCODONE HCL [Concomitant]
     Indication: PAIN

REACTIONS (1)
  - HERPES SIMPLEX [None]
